FAERS Safety Report 16110408 (Version 1)
Quarter: 2019Q1

REPORT INFORMATION
  Report Type: Spontaneous
  Country: AU (occurrence: AU)
  Receive Date: 20190325
  Receipt Date: 20190325
  Transmission Date: 20190418
  Serious: Yes (Other)
  Sender: FDA-Public Use
  Company Number: AU-ACCORD-114476

PATIENT
  Age: 33 Year
  Sex: Female

DRUGS (1)
  1. MONTELUKAST [Suspect]
     Active Substance: MONTELUKAST SODIUM
     Indication: URTICARIA

REACTIONS (4)
  - Haemorrhage [Unknown]
  - Purpura [Unknown]
  - Petechiae [Unknown]
  - Aplastic anaemia [Unknown]
